FAERS Safety Report 8307309-X (Version None)
Quarter: 2012Q2

REPORT INFORMATION
  Report Type: 
  Country: None (occurrence: None)
  Receive Date: 20120424
  Receipt Date: 20120417
  Transmission Date: 20120825
  Serious: Yes (Other)
  Sender: FDA-Public Use
  Company Number: JP-VERTEX PHARMACEUTICALS INC.-AE-2012-003441

PATIENT
  Age: 68 Year
  Sex: Male

DRUGS (15)
  1. MUCOSTA [Concomitant]
     Route: 048
     Dates: start: 20120111, end: 20120328
  2. ISOSORBIDE MONONITRATE [Concomitant]
     Route: 048
  3. DEPAS [Concomitant]
     Route: 048
  4. RIBAVIRIN [Concomitant]
     Indication: HEPATITIS C
     Route: 048
     Dates: start: 20120111, end: 20120124
  5. PEGINTERFERON [Concomitant]
     Indication: HEPATITIS C
     Route: 051
     Dates: end: 20120222
  6. ADALAT CC [Concomitant]
     Route: 048
  7. TELAVIC (TELAPREVIR) [Suspect]
     Route: 048
     Dates: start: 20120229, end: 20120306
  8. PEGINTERFERON [Concomitant]
     Route: 051
     Dates: start: 20120229, end: 20120321
  9. RIBAVIRIN [Concomitant]
     Route: 048
     Dates: start: 20120201, end: 20120324
  10. TELAVIC (TELAPREVIR) [Suspect]
     Route: 048
     Dates: start: 20120201, end: 20120228
  11. RIBAVIRIN [Concomitant]
     Route: 048
     Dates: start: 20120125, end: 20120131
  12. TELAVIC (TELAPREVIR) [Suspect]
     Route: 048
     Dates: start: 20120307, end: 20120324
  13. LAMISIL [Concomitant]
     Route: 061
     Dates: start: 20120125
  14. DIOVAN [Concomitant]
     Route: 048
  15. TELAVIC (TELAPREVIR) [Suspect]
     Indication: HEPATITIS C
     Route: 048
     Dates: start: 20120111, end: 20120131

REACTIONS (1)
  - RETINOPATHY [None]
